FAERS Safety Report 14506745 (Version 1)
Quarter: 2018Q1

REPORT INFORMATION
  Report Type: Spontaneous
  Country: US (occurrence: US)
  Receive Date: 20180208
  Receipt Date: 20180208
  Transmission Date: 20180509
  Serious: Yes (Life-Threatening, Hospitalization)
  Sender: FDA-Public Use
  Company Number: PHEH2018US004834

PATIENT
  Age: 65 Year
  Sex: Female
  Weight: 81 kg

DRUGS (1)
  1. ENTRESTO [Suspect]
     Active Substance: SACUBITRIL\VALSARTAN
     Indication: LEFT VENTRICULAR FAILURE
     Dosage: 50 MG, BID
     Route: 048
     Dates: start: 20171109, end: 20171115

REACTIONS (1)
  - Angioedema [Recovering/Resolving]

NARRATIVE: CASE EVENT DATE: 20171115
